FAERS Safety Report 9162880 (Version 3)
Quarter: 2013Q2

REPORT INFORMATION
  Report Type: Spontaneous
  Country: US (occurrence: US)
  Receive Date: 20130314
  Receipt Date: 20130416
  Transmission Date: 20140414
  Serious: Yes (Other)
  Sender: FDA-Public Use
  Company Number: US-SHIRE-ALL1-2013-01297

PATIENT
  Sex: Male
  Weight: 86.17 kg

DRUGS (8)
  1. ADDERALL XR [Suspect]
     Indication: ATTENTION DEFICIT/HYPERACTIVITY DISORDER
     Dosage: 10 MG, 1X/DAY:QD
     Route: 048
  2. ADDERALL XR [Suspect]
     Dosage: 15 MG, 1X/DAY:QD
     Route: 048
  3. ADDERALL XR [Suspect]
     Dosage: 20 MG, 1X/DAY:QD
     Route: 048
  4. ADDERALL XR [Suspect]
     Dosage: 25 MG, 1X/DAY:QD
     Route: 048
  5. ADDERALL XR [Suspect]
     Dosage: 30 MG, 1X/DAY:QD
     Route: 048
  6. ADDERALL XR [Suspect]
     Dosage: 30 MG, 2X/DAY:BID
     Route: 048
  7. XANAX [Concomitant]
     Indication: ANXIETY
     Dosage: UNK, UNKNOWN
     Route: 065
     Dates: end: 2012
  8. KLONOPIN [Concomitant]
     Indication: ANXIETY
     Dosage: 6 MG, 1X/DAY:QD
     Route: 065
     Dates: start: 2012

REACTIONS (6)
  - Bipolar disorder [Not Recovered/Not Resolved]
  - Feeling jittery [Not Recovered/Not Resolved]
  - Prescribed overdose [Not Recovered/Not Resolved]
  - Off label use [Not Recovered/Not Resolved]
  - Drug effect incomplete [Recovered/Resolved]
  - Mood swings [Not Recovered/Not Resolved]
